FAERS Safety Report 9095645 (Version 4)
Quarter: 2014Q3

REPORT INFORMATION
  Report Type: Report from Study
  Country: MX (occurrence: MX)
  Receive Date: 20130220
  Receipt Date: 20140726
  Transmission Date: 20150326
  Serious: Yes (Other)
  Sender: FDA-Public Use
  Company Number: PHHY2013MX015293

PATIENT
  Age: 78 Year
  Sex: Female

DRUGS (9)
  1. DIOVAN [Suspect]
     Active Substance: VALSARTAN
     Indication: HYPERTENSION
     Dosage: 2 DF (160 MG), DAILY
     Route: 048
     Dates: start: 201206, end: 201302
  2. PILOCARPINE [Concomitant]
     Active Substance: PILOCARPINE
     Indication: GLAUCOMA
     Dosage: 2 DRP, DAILY
     Dates: start: 201001
  3. ROFUCAL [Concomitant]
     Indication: DIURETIC THERAPY
     Dosage: 0.5 DF, DAILY
     Dates: start: 201212
  4. XALANTAN [Concomitant]
     Indication: INTRAOCULAR PRESSURE TEST ABNORMAL
     Dosage: 1 DRP, DAILY.
     Dates: start: 200301
  5. EQUIN [Concomitant]
     Indication: INFECTION
     Dosage: 1 UKN, DAILY
     Dates: start: 201302, end: 20130221
  6. SERETIDE EVOHALER [Concomitant]
     Indication: INCREASED UPPER AIRWAY SECRETION
     Dosage: 4 PUFFS DAILY
     Dates: start: 201302, end: 20130221
  7. PANTOPRAZOLE [Concomitant]
     Active Substance: PANTOPRAZOLE SODIUM
     Indication: FUNCTIONAL GASTROINTESTINAL DISORDER
     Dosage: 1DF, DAILY
     Dates: start: 201301
  8. ENDURA [Concomitant]
     Indication: EYE LUBRICATION THERAPY
     Dosage: 4 DRP, DAILY
     Dates: start: 201302
  9. GLP-1 AGONISTS [Concomitant]
     Indication: DIABETES MELLITUS
     Dosage: 0.5 DF, DAILY
     Dates: start: 201303

REACTIONS (9)
  - Constipation [Recovering/Resolving]
  - Lung infection [Recovered/Resolved]
  - Gastrointestinal inflammation [Unknown]
  - Spinal disorder [Unknown]
  - Arterial occlusive disease [Unknown]
  - Dyspepsia [Unknown]
  - Abdominal pain [Unknown]
  - Irritable bowel syndrome [Unknown]
  - Pain [Unknown]

NARRATIVE: CASE EVENT DATE: 201206
